FAERS Safety Report 18109249 (Version 2)
Quarter: 2021Q2

REPORT INFORMATION
  Report Type: Spontaneous
  Country: US (occurrence: US)
  Receive Date: 20200804
  Receipt Date: 20210420
  Transmission Date: 20210717
  Serious: Yes (Other)
  Sender: FDA-Public Use
  Company Number: US-ASTRAZENECA-2020SE88974

PATIENT
  Age: 987 Month
  Sex: Female
  Weight: 87.5 kg

DRUGS (5)
  1. XARELTO [Concomitant]
     Active Substance: RIVAROXABAN
     Dosage: 20.0MG UNKNOWN
     Route: 065
     Dates: start: 20151028
  2. FASLODEX [Suspect]
     Active Substance: FULVESTRANT
     Indication: BREAST CANCER FEMALE
     Dosage: 500.0MG UNKNOWN
     Route: 030
     Dates: start: 20151125
  3. METOPROLOL. [Concomitant]
     Active Substance: METOPROLOL
     Dosage: 50.0MG UNKNOWN
     Route: 065
     Dates: start: 20151028
  4. XANAX [Concomitant]
     Active Substance: ALPRAZOLAM
     Dosage: 0.25MG UNKNOWN
     Route: 065
     Dates: start: 20151028
  5. AMITRIPTYLINE [Concomitant]
     Active Substance: AMITRIPTYLINE
     Dosage: 100.0MG UNKNOWN
     Route: 065
     Dates: start: 20190124

REACTIONS (2)
  - Injection site mass [Recovered/Resolved with Sequelae]
  - Injection site scab [Recovering/Resolving]

NARRATIVE: CASE EVENT DATE: 202004
